FAERS Safety Report 16927172 (Version 2)
Quarter: 2019Q4

REPORT INFORMATION
  Report Type: Spontaneous
  Country: MX (occurrence: MX)
  Receive Date: 20191016
  Receipt Date: 20191126
  Transmission Date: 20200122
  Serious: Yes (Other)
  Sender: FDA-Public Use
  Company Number: PHHY2019MX212064

PATIENT
  Age: 4 Year
  Sex: Female
  Weight: 16 kg

DRUGS (2)
  1. CATAFLAM [Suspect]
     Active Substance: DICLOFENAC POTASSIUM
     Indication: INFECTION
  2. CATAFLAM [Suspect]
     Active Substance: DICLOFENAC POTASSIUM
     Indication: OROPHARYNGEAL PAIN
     Dosage: 15 DRP, Q8H (15 DROPS, EVERY 8 HOURS)
     Route: 048
     Dates: start: 20190902, end: 20190903

REACTIONS (8)
  - Product expiration date issue [Unknown]
  - Poisoning [Unknown]
  - Nephrotic syndrome [Not Recovered/Not Resolved]
  - General physical health deterioration [Unknown]
  - Product lot number issue [Unknown]
  - Discomfort [Not Recovered/Not Resolved]
  - Eye swelling [Not Recovered/Not Resolved]
  - Face oedema [Not Recovered/Not Resolved]

NARRATIVE: CASE EVENT DATE: 20190903
